FAERS Safety Report 6242679-8 (Version None)
Quarter: 2009Q2

REPORT INFORMATION
  Report Type: 
  Country: None (occurrence: None)
  Receive Date: 20090624
  Receipt Date: 20090619
  Transmission Date: 20091009
  Serious: Yes (Death, Hospitalization)
  Sender: FDA-Public Use
  Company Number: IT-ROCHE-639512

PATIENT
  Sex: Female

DRUGS (5)
  1. CAPECITABINE [Suspect]
     Indication: BREAST CANCER
     Route: 065
     Dates: start: 20090318, end: 20090507
  2. LAPATINIB [Suspect]
     Indication: BREAST CANCER
     Route: 065
     Dates: start: 20090504, end: 20090507
  3. OMEPRAZOLE [Concomitant]
     Dates: start: 20090504
  4. DEXAMETHASONE [Concomitant]
     Dates: start: 20090427
  5. GASTRO GEL [Concomitant]
     Dates: start: 20090427

REACTIONS (2)
  - NEUTROPENIA [None]
  - SEPSIS [None]
